FAERS Safety Report 7097605-9 (Version None)
Quarter: 2010Q4

REPORT INFORMATION
  Report Type: 
  Country: None (occurrence: None)
  Receive Date: 20101112
  Receipt Date: 20101103
  Transmission Date: 20110411
  Serious: Yes (Hospitalization)
  Sender: FDA-Public Use
  Company Number: US-BIOGENIDEC-2010BI011535

PATIENT
  Age: 53 Year
  Sex: Female
  Weight: 67 kg

DRUGS (4)
  1. TYSABRI [Suspect]
     Indication: MULTIPLE SCLEROSIS
     Route: 042
     Dates: start: 20091027, end: 20100329
  2. PROVIGIL [Concomitant]
     Indication: PRODUCT USED FOR UNKNOWN INDICATION
  3. VICODIN [Concomitant]
     Indication: PRODUCT USED FOR UNKNOWN INDICATION
  4. GEODON [Concomitant]
     Indication: CONFUSIONAL STATE

REACTIONS (6)
  - CARDIAC ARREST [None]
  - DRUG HYPERSENSITIVITY [None]
  - MAJOR DEPRESSION [None]
  - OVERDOSE [None]
  - PNEUMONIA [None]
  - SUICIDE ATTEMPT [None]
